FAERS Safety Report 26184290 (Version 1)
Quarter: 2025Q4

REPORT INFORMATION
  Report Type: Report from Study
  Country: BR (occurrence: BR)
  Receive Date: 20251222
  Receipt Date: 20251222
  Transmission Date: 20260117
  Serious: Yes (Other)
  Sender: MERCK KGAA
  Company Number: BR-Merck Healthcare KGaA-2025018208

PATIENT
  Age: 32 Year
  Sex: Female

DRUGS (1)
  1. INTERFERON BETA-1A [Suspect]
     Active Substance: INTERFERON BETA-1A
     Indication: Multiple sclerosis
     Dates: start: 20190901

REACTIONS (1)
  - Triple negative breast cancer [Recovering/Resolving]

NARRATIVE: CASE EVENT DATE: 20250101
